FAERS Safety Report 19057819 (Version 1)
Quarter: 2021Q1

REPORT INFORMATION
  Report Type: Report from Study
  Country: BE (occurrence: BE)
  Receive Date: 20210325
  Receipt Date: 20210325
  Transmission Date: 20210420
  Serious: Yes (Death, Hospitalization, Other)
  Sender: FDA-Public Use
  Company Number: BE-GILEAD-2020-0505664

PATIENT
  Age: 88 Year
  Sex: Male
  Weight: 67 kg

DRUGS (8)
  1. REMDESIVIR. [Suspect]
     Active Substance: REMDESIVIR
     Indication: COVID-19
     Dosage: 100 MG, QD
     Route: 042
     Dates: start: 20201118, end: 20201121
  2. MORFIN [MORPHINE] [Suspect]
     Active Substance: MORPHINE
     Indication: DYSPNOEA
     Dosage: 69 UNK
     Route: 042
     Dates: start: 20201121
  3. AACIDEXAM [DEXAMETHASONE] [Concomitant]
     Indication: COVID-19
     Dosage: 5 MG
     Dates: start: 20201118
  4. ENOXAPARIN [Concomitant]
     Active Substance: ENOXAPARIN
     Indication: COVID-19
     Dosage: 40 MG
     Route: 058
     Dates: start: 20201115, end: 20201121
  5. DIAZEPAM. [Suspect]
     Active Substance: DIAZEPAM
     Indication: ANXIOLYTIC THERAPY
     Dosage: 40 UNK
     Route: 042
     Dates: start: 20201121
  6. PIPERACILLIN AND TAZOBACTAM [Concomitant]
     Active Substance: PIPERACILLIN SODIUM\TAZOBACTAM SODIUM
     Indication: SUPERINFECTION BACTERIAL
     Dosage: 16 G UNK
     Route: 042
     Dates: start: 20201119, end: 20201121
  7. FUROSEMIDE. [Concomitant]
     Active Substance: FUROSEMIDE
     Indication: CARDIAC FAILURE
     Dosage: 20 MG, QD
     Route: 042
     Dates: start: 20201119
  8. MORFIN [MORPHINE] [Suspect]
     Active Substance: MORPHINE
     Dosage: 30 MG
     Route: 042
     Dates: start: 20201121

REACTIONS (2)
  - Multiple organ dysfunction syndrome [Fatal]
  - Acute respiratory distress syndrome [Fatal]

NARRATIVE: CASE EVENT DATE: 20201121
